FAERS Safety Report 8982993 (Version 1)
Quarter: 2012Q4

REPORT INFORMATION
  Report Type: 
  Country: FR (occurrence: FR)
  Receive Date: 20121224
  Receipt Date: 20121224
  Transmission Date: 20130627
  Serious: Yes (Death, Hospitalization)
  Sender: FDA-Public Use
  Company Number: FR-BRISTOL-MYERS SQUIBB COMPANY-17210865

PATIENT
  Age: 93 Year
  Sex: Female

DRUGS (6)
  1. APROVEL TABS 300 MG [Suspect]
     Indication: ATRIAL FIBRILLATION
     Route: 048
     Dates: start: 201208, end: 201210
  2. PRADAXA [Suspect]
     Indication: ATRIAL FIBRILLATION
     Dosage: Formulation-Pradaxa caps 110mg
     Route: 048
     Dates: start: 201206, end: 20121020
  3. LASILIX [Concomitant]
     Dosage: Formulation-Lasilix scored tab 40mg
  4. DIFFU-K [Concomitant]
  5. CORDARONE [Concomitant]
  6. CARDENSIEL [Concomitant]
     Dosage: Formulation-Cardensiel scored film-coated 2.5mg

REACTIONS (4)
  - Cardiac failure [Fatal]
  - Diarrhoea [Unknown]
  - Dehydration [Unknown]
  - Thrombocytopenia [Unknown]
